FAERS Safety Report 8582568-7 (Version None)
Quarter: 2012Q3

REPORT INFORMATION
  Report Type: 
  Country: None (occurrence: None)
  Receive Date: 20120809
  Receipt Date: 20120606
  Transmission Date: 20120928
  Serious: Yes (Other)
  Sender: FDA-Public Use
  Company Number: FR-ROCHE-1095792

PATIENT
  Sex: Male

DRUGS (5)
  1. FLUOROURACIL [Concomitant]
     Dosage: FIRST LINE TREATMENT
     Dates: start: 20080630, end: 20081223
  2. AVASTIN [Suspect]
     Indication: COLON CANCER
     Dosage: 12 COURSES OF BEVACIZUMAB, FIRST LINE TREATMENT
     Dates: start: 20080630, end: 20081223
  3. AVASTIN [Suspect]
     Dosage: 6 COURSES OF BEVACIZUMAB
     Dates: start: 20090202, end: 20090518
  4. LEUCOVORIN CALCIUM [Concomitant]
     Dosage: FIRST LINE TREATMENT
     Dates: start: 20080630, end: 20081223
  5. OXALIPLATIN [Concomitant]
     Dosage: FIRST LINE TREATMENT
     Dates: start: 20080630, end: 20081223

REACTIONS (10)
  - NAUSEA [None]
  - NEUTROPENIA [None]
  - DISEASE PROGRESSION [None]
  - DECREASED APPETITE [None]
  - DIARRHOEA [None]
  - NEUROPATHY PERIPHERAL [None]
  - THROMBOCYTOPENIA [None]
  - ASTHENIA [None]
  - VOMITING [None]
  - GASTRITIS [None]
